FAERS Safety Report 9661986 (Version 1)
Quarter: 2013Q4

REPORT INFORMATION
  Report Type: Spontaneous
  Country: US (occurrence: US)
  Receive Date: 20131031
  Receipt Date: 20131031
  Transmission Date: 20140711
  Serious: No
  Sender: FDA-Public Use
  Company Number: US-PURDUE-USA-2011-0067791

PATIENT
  Sex: Male

DRUGS (2)
  1. OXYCONTIN (NDA 22-272) [Suspect]
     Indication: PRODUCT USED FOR UNKNOWN INDICATION
     Dosage: 80 MG, QID
     Route: 048
     Dates: start: 201102
  2. ROXICODONE [Concomitant]
     Indication: BREAKTHROUGH PAIN
     Dosage: 30 MG, 5/DAY
     Route: 048

REACTIONS (7)
  - Eye haemorrhage [Unknown]
  - Medication residue present [Recovered/Resolved]
  - Choking [Not Recovered/Not Resolved]
  - Foreign body [Recovered/Resolved]
  - Abdominal pain upper [Not Recovered/Not Resolved]
  - Headache [Not Recovered/Not Resolved]
  - Drug effect decreased [Not Recovered/Not Resolved]
